FAERS Safety Report 15456687 (Version 1)
Quarter: 2018Q3

REPORT INFORMATION
  Report Type: Spontaneous
  Country: US (occurrence: US)
  Receive Date: 20180928
  Receipt Date: 20180928
  Transmission Date: 20181010
  Serious: No
  Sender: FDA-Public Use
  Company Number: None

PATIENT
  Age: 67 Year
  Sex: Female

DRUGS (1)
  1. NINLARO [Suspect]
     Active Substance: IXAZOMIB CITRATE
     Indication: PLASMA CELL MYELOMA IN REMISSION
     Dosage: 4MG CAPS TAKE ONE CAPSULE 1,8, AND 15 ORAL??26/SEP/2018
     Route: 048
     Dates: start: 20180117

REACTIONS (2)
  - Condition aggravated [None]
  - Neuropathy peripheral [None]
